FAERS Safety Report 13950545 (Version 1)
Quarter: 2017Q3

REPORT INFORMATION
  Report Type: Report from Study
  Country: US (occurrence: US)
  Receive Date: 20170908
  Receipt Date: 20170908
  Transmission Date: 20171128
  Serious: Yes (Other)
  Sender: FDA-Public Use
  Company Number: US-ARIAD PHARMACEUTICALS, INC-2017US008816

PATIENT
  Sex: Female

DRUGS (1)
  1. ICLUSIG [Suspect]
     Active Substance: PONATINIB
     Indication: ACUTE LYMPHOCYTIC LEUKAEMIA
     Dosage: 30 MG, QD
     Route: 048
     Dates: start: 20170808

REACTIONS (17)
  - Lymphoproliferative disorder [Unknown]
  - Nephrolithiasis [Unknown]
  - Hepatic steatosis [Unknown]
  - Nausea [Unknown]
  - Vomiting [Unknown]
  - Myalgia [Unknown]
  - Dysarthria [Recovered/Resolved]
  - Vitamin B12 deficiency [Unknown]
  - Neuropathy peripheral [Unknown]
  - Alopecia [Unknown]
  - Chronic kidney disease [Unknown]
  - Chemotherapy [Unknown]
  - Sensory level abnormal [Unknown]
  - Anaemia [Unknown]
  - Asthenia [Unknown]
  - Back pain [Unknown]
  - Thrombocytopenia [Unknown]
